FAERS Safety Report 4431396-2 (Version None)
Quarter: 2004Q3

REPORT INFORMATION
  Report Type: 
  Country: None (occurrence: None)
  Receive Date: 20040818
  Receipt Date: 20040802
  Transmission Date: 20050211
  Serious: Yes (Death)
  Sender: FDA-Public Use
  Company Number: A01200403666

PATIENT
  Age: 71 Year
  Sex: Male

DRUGS (12)
  1. CLOPIDOGREL [Suspect]
     Dosage: 75 MG; ORAL
     Route: 048
  2. ASPIRIN [Suspect]
     Indication: MYOCARDIAL ISCHAEMIA
     Dosage: 150 MG, ORAL
     Route: 048
     Dates: end: 20030311
  3. METALYSE      (TENECTEPLASE) - SOLUTION [Suspect]
     Indication: ACUTE MYOCARDIAL INFARCTION
     Dosage: 40 MG OD,
     Dates: start: 20030309, end: 20030301
  4. TIROFIBAN HYDROCHLORIDE [Suspect]
     Indication: INFARCTION
     Dosage: 12.5 MG QD;
     Dates: start: 20030310, end: 20030311
  5. FRAGMIN [Suspect]
     Dosage: 20 KYOWA UNITS
     Dates: start: 20030309, end: 20030311
  6. ENOXAPARIN SODIUM [Suspect]
     Dosage: 30 MG  ONCE,INTRAVENOUS
     Route: 042
     Dates: start: 20030309, end: 20030309
  7. HEPARIN SODIUM [Suspect]
     Dosage: 250 KYOWA UNITS AS NIEEDED
     Dates: start: 20030310, end: 20030311
  8. GLICLAZIDE [Concomitant]
  9. LATANOPROST [Concomitant]
  10. BRIMONIDINE [Concomitant]
  11. COSOPT [Concomitant]
  12. IRBESARTAN [Concomitant]

REACTIONS (2)
  - DRUG INTERACTION [None]
  - HAEMORRHAGIC STROKE [None]
